FAERS Safety Report 9213176 (Version 3)
Quarter: 2013Q2

REPORT INFORMATION
  Report Type: Spontaneous
  Country: US (occurrence: US)
  Receive Date: 20130405
  Receipt Date: 20130530
  Transmission Date: 20140414
  Serious: No
  Sender: FDA-Public Use
  Company Number: US-JNJFOC-20130316549

PATIENT
  Age: 54 Year
  Sex: Female
  Weight: 52.16 kg

DRUGS (19)
  1. DURAGESIC [Suspect]
     Indication: MIGRAINE
     Route: 062
     Dates: start: 201201
  2. MAGNESIUM [Concomitant]
     Indication: MINERAL SUPPLEMENTATION
     Route: 048
  3. TOPAMAX [Concomitant]
     Indication: MIGRAINE
     Dosage: AT NIGHT
     Route: 048
  4. TOPAMAX [Concomitant]
     Indication: MIGRAINE
     Dosage: IN THE MORNING
     Route: 048
  5. MELOXICAM [Concomitant]
     Indication: MIGRAINE
     Route: 048
  6. MIGRANAL [Concomitant]
     Indication: MIGRAINE
     Dosage: AS NEEDED
     Route: 048
  7. IRON [Concomitant]
     Indication: MINERAL SUPPLEMENTATION
     Route: 048
  8. TRAZODONE [Concomitant]
     Indication: INSOMNIA
     Dosage: AT NIGHT
     Route: 048
  9. TRAZODONE [Concomitant]
     Indication: SLEEP DISORDER
     Dosage: AT NIGHT
     Route: 048
  10. MELADINE [Concomitant]
     Indication: SLEEP DISORDER
     Dosage: AT NIGHT
     Route: 048
  11. B12 [Concomitant]
     Indication: VITAMIN SUPPLEMENTATION
     Route: 030
  12. MULTIVITAMINS/MINERALS [Concomitant]
     Indication: VITAMIN SUPPLEMENTATION
     Route: 048
  13. FLONASE [Concomitant]
     Indication: MULTIPLE ALLERGIES
     Dosage: 2.0 QUIRTS
     Route: 048
  14. SONATA [Concomitant]
     Indication: SLEEP DISORDER
     Dosage: NIGHT
     Route: 048
  15. TIZANIDINE [Concomitant]
     Indication: INSOMNIA
     Dosage: AT NIGHT
     Route: 048
  16. MELATONIN [Concomitant]
     Indication: INSOMNIA
     Dosage: AT NIGHT
     Route: 065
  17. LOESTRIN [Concomitant]
     Indication: NAUSEA
     Dosage: AT NIGHT
     Route: 065
  18. LOESTRIN [Concomitant]
     Indication: INSOMNIA
     Dosage: AT NIGHT
     Route: 065
  19. COMPAZINE [Concomitant]
     Indication: MIGRAINE
     Dosage: AT NIGHT
     Route: 065

REACTIONS (2)
  - Wrong technique in drug usage process [Recovered/Resolved]
  - Product quality issue [Recovered/Resolved]
